FAERS Safety Report 25366139 (Version 1)
Quarter: 2025Q2

REPORT INFORMATION
  Report Type: Spontaneous
  Country: US (occurrence: US)
  Receive Date: 20250528
  Receipt Date: 20250528
  Transmission Date: 20250716
  Serious: Yes (Hospitalization, Other)
  Sender: Haleon PLC
  Company Number: US-HALEON-2244037

PATIENT
  Age: 15 Year

DRUGS (12)
  1. ACETAMINOPHEN [Suspect]
     Active Substance: ACETAMINOPHEN
     Indication: Product used for unknown indication
     Route: 048
  2. CLONIDINE [Concomitant]
     Active Substance: CLONIDINE
     Indication: Product used for unknown indication
  3. MELATONIN [Concomitant]
     Active Substance: MELATONIN
     Indication: Product used for unknown indication
  4. OLANZAPINE [Concomitant]
     Active Substance: OLANZAPINE
     Indication: Product used for unknown indication
  5. BENZODIAZEPINE [Concomitant]
     Active Substance: BENZODIAZEPINE
     Indication: Aggression
  6. METFORMIN [Concomitant]
     Active Substance: METFORMIN HYDROCHLORIDE
     Indication: Product used for unknown indication
  7. SERTRALINE [Concomitant]
     Active Substance: SERTRALINE HYDROCHLORIDE
     Indication: Product used for unknown indication
  8. TRAZODONE [Concomitant]
     Active Substance: TRAZODONE HYDROCHLORIDE
     Indication: Product used for unknown indication
  9. LORAZEPAM [Concomitant]
     Active Substance: LORAZEPAM
     Indication: Agitation
     Route: 042
  10. KETAMINE [Concomitant]
     Active Substance: KETAMINE
     Indication: Agitation
  11. CHLORPROMAZINE [Concomitant]
     Active Substance: CHLORPROMAZINE
     Indication: Agitation
  12. LITHIUM [Concomitant]
     Active Substance: LITHIUM
     Indication: Bipolar disorder

REACTIONS (14)
  - Suicide attempt [Recovering/Resolving]
  - Catatonia [Recovering/Resolving]
  - Staring [Recovering/Resolving]
  - Grimacing [Recovering/Resolving]
  - Stereotypy [Recovering/Resolving]
  - Verbigeration [Recovering/Resolving]
  - Muscle rigidity [Recovering/Resolving]
  - Negativism [Recovering/Resolving]
  - Impulsive behaviour [Recovering/Resolving]
  - Perseveration [Recovering/Resolving]
  - Overdose [Unknown]
  - Aggression [Recovering/Resolving]
  - Agitation [Recovering/Resolving]
  - Liver injury [Recovering/Resolving]
